FAERS Safety Report 5485649-X (Version None)
Quarter: 2007Q4

REPORT INFORMATION
  Report Type: 
  Country: None (occurrence: None)
  Receive Date: 20071011
  Receipt Date: 20070928
  Transmission Date: 20080405
  Serious: Yes (Death)
  Sender: FDA-Public Use
  Company Number: GXKR2007GB08417

PATIENT
  Age: 63 Year
  Sex: Male

DRUGS (3)
  1. ZOLPIDEM [Suspect]
     Indication: AGITATION
     Dosage: 10 MG, ORAL
     Route: 048
     Dates: start: 20061003
  2. PAROXETINE HCL [Concomitant]
  3. ZOPICLONE (ZOPICLONE) [Concomitant]

REACTIONS (1)
  - COMPLETED SUICIDE [None]
